FAERS Safety Report 25475244 (Version 3)
Quarter: 2025Q4

REPORT INFORMATION
  Report Type: Report from Study
  Country: CA (occurrence: None)
  Receive Date: 20250624
  Receipt Date: 20251130
  Transmission Date: 20260117
  Serious: Yes (Other)
  Sender: UCB
  Company Number: CA-UCBSA-2025037287

PATIENT

DRUGS (2)
  1. CERTOLIZUMAB PEGOL [Suspect]
     Active Substance: CERTOLIZUMAB PEGOL
     Indication: Ankylosing spondylitis
     Dosage: 200 MILLIGRAM, EV 2 WEEKS(QOW)
  2. TRILLIUM [Concomitant]
     Active Substance: ACHILLEA MILLEFOLIUM\CALENDULA OFFICINALIS FLOWERING TOP\CAPSELLA BURSA-PASTORIS\HAMAMELIS VIRGINIAN
     Indication: Product used for unknown indication
     Dosage: UNK

REACTIONS (3)
  - Ankylosing spondylitis [Unknown]
  - Drug ineffective [Unknown]
  - Product dose omission in error [Unknown]
